FAERS Safety Report 18964310 (Version 1)
Quarter: 2021Q1

REPORT INFORMATION
  Report Type: Spontaneous
  Country: FR (occurrence: FR)
  Receive Date: 20210303
  Receipt Date: 20210303
  Transmission Date: 20210420
  Serious: Yes (Life-Threatening, Hospitalization)
  Sender: FDA-Public Use
  Company Number: FR-AUROBINDO-AUR-APL-2019-049570

PATIENT
  Age: 61 Year
  Sex: Male

DRUGS (8)
  1. MABTHERA [Suspect]
     Active Substance: RITUXIMAB
     Indication: MANTLE CELL LYMPHOMA
     Dosage: 690 UNK, QD
     Route: 042
     Dates: start: 20160715, end: 20161017
  2. CARBOPLATIN HOSPIRA [Suspect]
     Active Substance: CARBOPLATIN
     Indication: MANTLE CELL LYMPHOMA
     Dosage: 814 MILLIGRAM/J
     Route: 042
     Dates: start: 20160715, end: 20161017
  3. CYTARABINE KABI [Suspect]
     Active Substance: CYTARABINE
     Indication: MANTLE CELL LYMPHOMA
     Dosage: 3680 MG, BID
     Route: 042
     Dates: start: 20160715, end: 201608
  4. CYTARABINE KABI [Suspect]
     Active Substance: CYTARABINE
     Dosage: UNK
     Route: 065
     Dates: start: 201609, end: 20161017
  5. DEXAMETHASONE. [Suspect]
     Active Substance: DEXAMETHASONE
     Indication: MANTLE CELL LYMPHOMA
     Dosage: 40 MILLIGRAM/J
     Route: 042
     Dates: start: 20160715, end: 20161017
  6. MABTHERA [Suspect]
     Active Substance: RITUXIMAB
     Dosage: 455 UNK, QD
     Route: 042
     Dates: start: 20161109, end: 20161116
  7. CYTARABINE EBEWE [Suspect]
     Active Substance: CYTARABINE
     Indication: MANTLE CELL LYMPHOMA
     Dosage: 3680 MG 2 FOIS PAR JOUR
     Route: 042
     Dates: start: 20160715, end: 201608
  8. ZEVALIN [Suspect]
     Active Substance: IBRITUMOMAB TIUXETAN
     Indication: MANTLE CELL LYMPHOMA
     Dosage: 807 MBQ, SINGLE
     Route: 042
     Dates: start: 20161116

REACTIONS (2)
  - Thrombotic microangiopathy [Recovering/Resolving]
  - Off label use [Unknown]

NARRATIVE: CASE EVENT DATE: 20161123
